FAERS Safety Report 14238011 (Version 1)
Quarter: 2017Q4

REPORT INFORMATION
  Report Type: Spontaneous
  Country: US (occurrence: US)
  Receive Date: 20171130
  Receipt Date: 20171130
  Transmission Date: 20180321
  Serious: Yes (Life-Threatening, Hospitalization, Other)
  Sender: FDA-Public Use
  Company Number: US-ALVOGEN-2017-ALVOGEN-094151

PATIENT
  Age: 53 Year
  Sex: Female

DRUGS (27)
  1. VINCRISTINE [Suspect]
     Active Substance: VINCRISTINE
     Indication: DIFFUSE LARGE B-CELL LYMPHOMA
     Dosage: FIRST CYCLE OF R-EPOCH () ; CYCLICAL
  2. PREDNISONE. [Suspect]
     Active Substance: PREDNISONE
     Indication: DIFFUSE LARGE B-CELL LYMPHOMA
     Dosage: FOURTH CYCLE: 20% DOSE-REDUCED OF R-EPOCH () ; CYCLICAL
  3. CYCLOPHOSPHAMIDE. [Suspect]
     Active Substance: CYCLOPHOSPHAMIDE
     Indication: DIFFUSE LARGE B-CELL LYMPHOMA
     Dosage: THIRD CYCLE: 20% DOSE-REDUCED OF R-EPOCH () ; CYCLICAL
  4. ETOPOSIDE. [Suspect]
     Active Substance: ETOPOSIDE
     Indication: DIFFUSE LARGE B-CELL LYMPHOMA
     Dosage: FOURTH CYCLE: 20% DOSE-REDUCED OF R-EPOCH () ; CYCLICAL
  5. RITUXIMAB. [Suspect]
     Active Substance: RITUXIMAB
     Indication: DIFFUSE LARGE B-CELL LYMPHOMA
     Dosage: FOURTH CYCLE: 20% DOSE-REDUCED OF R-EPOCH () ; CYCLICAL
  6. RITUXIMAB. [Suspect]
     Active Substance: RITUXIMAB
     Indication: DIFFUSE LARGE B-CELL LYMPHOMA
     Dosage: THIRD CYCLE: 20% DOSE-REDUCED OF R-EPOCH () ; CYCLICAL
  7. PREDNISONE. [Suspect]
     Active Substance: PREDNISONE
     Indication: DIFFUSE LARGE B-CELL LYMPHOMA
     Dosage: FIRST CYCLE OF R-EPOCH () ; CYCLICAL
  8. VINCRISTINE [Suspect]
     Active Substance: VINCRISTINE
     Indication: DIFFUSE LARGE B-CELL LYMPHOMA
     Dosage: SECOND CYCLE OF R-EPOCH () ; CYCLICAL
  9. PREDNISONE. [Suspect]
     Active Substance: PREDNISONE
     Indication: DIFFUSE LARGE B-CELL LYMPHOMA
     Dosage: SECOND CYCLE OF R-EPOCH () ; CYCLICAL
  10. SULFAMETHOXAZOLE/TRIMETHOPRIM [Concomitant]
     Indication: PROPHYLAXIS
  11. RITUXIMAB. [Suspect]
     Active Substance: RITUXIMAB
     Indication: DIFFUSE LARGE B-CELL LYMPHOMA
     Dosage: SECOND CYCLE OF R-EPOCH () ; CYCLICAL
  12. VINCRISTINE [Suspect]
     Active Substance: VINCRISTINE
     Indication: DIFFUSE LARGE B-CELL LYMPHOMA
     Dosage: THIRD CYCLE: 20% DOSE-REDUCED OF R-EPOCH () ; CYCLICAL
  13. DOXORUBICIN [Suspect]
     Active Substance: DOXORUBICIN
     Indication: DIFFUSE LARGE B-CELL LYMPHOMA
     Dosage: FIRST CYCLE OF R-EPOCH () ; CYCLICAL
  14. CYCLOPHOSPHAMIDE. [Suspect]
     Active Substance: CYCLOPHOSPHAMIDE
     Indication: DIFFUSE LARGE B-CELL LYMPHOMA
     Dosage: FIRST CYCLE OF R-EPOCH () ; CYCLICAL
  15. ETOPOSIDE. [Suspect]
     Active Substance: ETOPOSIDE
     Indication: DIFFUSE LARGE B-CELL LYMPHOMA
     Dosage: THIRD CYCLE: 20% DOSE-REDUCED OF R-EPOCH () ; CYCLICAL
  16. CYCLOPHOSPHAMIDE. [Suspect]
     Active Substance: CYCLOPHOSPHAMIDE
     Indication: DIFFUSE LARGE B-CELL LYMPHOMA
     Dosage: SECOND CYCLE OF R-EPOCH () ; CYCLICAL
  17. CYCLOPHOSPHAMIDE. [Suspect]
     Active Substance: CYCLOPHOSPHAMIDE
     Indication: DIFFUSE LARGE B-CELL LYMPHOMA
     Dosage: FOURTH CYCLE: 20% DOSE-REDUCED OF R-EPOCH () ; CYCLICAL
  18. ETOPOSIDE. [Suspect]
     Active Substance: ETOPOSIDE
     Indication: DIFFUSE LARGE B-CELL LYMPHOMA
     Dosage: SECOND CYCLE OF R-EPOCH () ; CYCLICAL
  19. DOXORUBICIN [Suspect]
     Active Substance: DOXORUBICIN
     Indication: DIFFUSE LARGE B-CELL LYMPHOMA
     Dosage: FOURTH CYCLE: 20% DOSE-REDUCED OF R-EPOCH () ; CYCLICAL
  20. VINCRISTINE [Suspect]
     Active Substance: VINCRISTINE
     Indication: DIFFUSE LARGE B-CELL LYMPHOMA
     Dosage: FOURTH CYCLE: 20% DOSE-REDUCED OF R-EPOCH () ; CYCLICAL
  21. AZITHROMYCIN ANHYDROUS. [Concomitant]
     Active Substance: AZITHROMYCIN ANHYDROUS
     Indication: PROPHYLAXIS
  22. ETOPOSIDE. [Suspect]
     Active Substance: ETOPOSIDE
     Indication: DIFFUSE LARGE B-CELL LYMPHOMA
     Dosage: FIRST CYCLE OF R-EPOCH () ; CYCLICAL
  23. PREDNISONE. [Suspect]
     Active Substance: PREDNISONE
     Indication: DIFFUSE LARGE B-CELL LYMPHOMA
     Dosage: THIRD CYCLE: 20% DOSE-REDUCED OF R-EPOCH () ; CYCLICAL
  24. FLUCONAZOLE. [Concomitant]
     Active Substance: FLUCONAZOLE
     Indication: PROPHYLAXIS
  25. DOXORUBICIN [Suspect]
     Active Substance: DOXORUBICIN
     Indication: DIFFUSE LARGE B-CELL LYMPHOMA
     Dosage: SECOND CYCLE OF R-EPOCH () ; CYCLICAL
  26. DOXORUBICIN [Suspect]
     Active Substance: DOXORUBICIN
     Indication: DIFFUSE LARGE B-CELL LYMPHOMA
     Dosage: THIRD CYCLE: 20% DOSE-REDUCED OF R-EPOCH () ; CYCLICAL
  27. RITUXIMAB. [Suspect]
     Active Substance: RITUXIMAB
     Indication: DIFFUSE LARGE B-CELL LYMPHOMA
     Dosage: FIRST CYCLE OF R-EPOCH () ; CYCLICAL

REACTIONS (5)
  - Cystitis haemorrhagic [Recovering/Resolving]
  - Bacteraemia [Unknown]
  - Septic shock [Unknown]
  - BK virus infection [Recovering/Resolving]
  - Febrile neutropenia [Unknown]
